FAERS Safety Report 8503592 (Version 8)
Quarter: 2014Q2

REPORT INFORMATION
  Report Type: Spontaneous
  Country: US (occurrence: None)
  Receive Date: 20120403
  Receipt Date: 20140516
  Transmission Date: 20141212
  Serious: Yes (Life-Threatening, Hospitalization, Other)
  Sender: FDA-Public Use
  Company Number: ADR-2012-00469

PATIENT
  Sex: Female
  Weight: 109 kg

DRUGS (37)
  1. LIORESAL [Suspect]
     Indication: PAIN
  2. MORPHINE [Suspect]
  3. CLONIDINE [Suspect]
  4. ATARAX [Suspect]
     Dosage: 25 MG, AS NEEDED
  5. CLONIDINE [Suspect]
     Dosage: ORAL, 0.2 MG, 1 TABLET TWICE A DAY?
     Route: 048
  6. COREG [Suspect]
     Dosage: ORAL, 25 MG, 1 TABLET TWICE PER DAY?
     Route: 048
  7. DILAUDID [Suspect]
     Route: 048
  8. DIOVAN [Suspect]
     Dosage: ORAL, 320 MG, ONCE DAILY
     Route: 048
  9. KLONOPIN [Suspect]
  10. NORVASC [Suspect]
     Dosage: 5MG, ONCE AT BEDTIME
  11. IBUPROFEN [Suspect]
  12. MORPHINE [Suspect]
  13. OXYCODONE [Suspect]
  14. KEFLEX [Suspect]
  15. CLONAZEPAM [Suspect]
     Dosage: 2 MG TAKEN AT BEDTIME?
  16. SOMA [Suspect]
     Dosage: 1 EVERY 4 HOURS AS NEEDED??
  17. FENTANYL PATCH [Suspect]
     Dosage: 200 MCG/HR EVERY 72 HOURS
  18. OXYCODONE [Suspect]
  19. HYDROXYZINE [Suspect]
  20. DILANTIN [Suspect]
     Dosage: 200 MG 3 TIMES PER DAY?
  21. DURAGESIC [Suspect]
  22. MORPHINE SULFATE [Suspect]
     Route: 042
  23. PHENERGAN [Suspect]
     Dosage: 12.5 MG EVERY 6 HOURS AS NEEDED?
  24. MORPHINE SULFATE [Suspect]
     Dosage: 30 MG EVERY 4 HOURS AS NEEDED?
  25. AMLODIPINE [Suspect]
  26. METOCLOPRAMIDE [Suspect]
  27. CARISOPRODOL [Suspect]
  28. ACETAMINOPHEN [Suspect]
  29. PANTOPRAZOLE [Suspect]
  30. MORPHINE [Suspect]
     Dosage: 2 MG INTRAVENOUSLY EVERY 2 HOURS AS NEEDED?
     Route: 042
  31. PHENYTOIN [Suspect]
  32. AMLODIPINE [Suspect]
  33. VALSARTAN [Suspect]
  34. CARVEDILOL [Suspect]
  35. ENOXAPARIN [Suspect]
  36. ORPHENADRINE [Suspect]
  37. FUROSEMIDE [Suspect]

REACTIONS (79)
  - Osteomyelitis [None]
  - Inadequate analgesia [None]
  - Suture related complication [None]
  - Allergy to metals [None]
  - Implant site infection [None]
  - Staphylococcus test positive [None]
  - Paralysis [None]
  - Incision site complication [None]
  - Postoperative fever [None]
  - Wound dehiscence [None]
  - Wound secretion [None]
  - Device related infection [None]
  - Anxiety disorder [None]
  - Panic disorder [None]
  - Paraesthesia [None]
  - Hypoaesthesia [None]
  - Hypoaesthesia [None]
  - Hypoaesthesia [None]
  - Tooth fracture [None]
  - Contusion [None]
  - Anaemia [None]
  - Purulence [None]
  - Device intolerance [None]
  - Tremor [None]
  - Abasia [None]
  - Nausea [None]
  - Vomiting [None]
  - Throat irritation [None]
  - Food intolerance [None]
  - Hypophagia [None]
  - Dehydration [None]
  - Dyspnoea [None]
  - No therapeutic response [None]
  - Hypertension [None]
  - Asthenia [None]
  - Insomnia [None]
  - Headache [None]
  - Cough [None]
  - Dyspnoea [None]
  - Heart rate increased [None]
  - Respiratory rate increased [None]
  - Impaired gastric emptying [None]
  - Hypovolaemia [None]
  - Urinary tract infection [None]
  - Treatment noncompliance [None]
  - Hypokalaemia [None]
  - Hyponatraemia [None]
  - Blood glucose increased [None]
  - Cardiac disorder [None]
  - Left ventricular hypertrophy [None]
  - QRS axis abnormal [None]
  - Wound infection staphylococcal [None]
  - Hypotension [None]
  - Back pain [None]
  - Pain in extremity [None]
  - Condition aggravated [None]
  - Skin infection [None]
  - Muscle spasms [None]
  - Muscular weakness [None]
  - Hyperpathia [None]
  - Allodynia [None]
  - Blood calcium decreased [None]
  - Blood magnesium decreased [None]
  - Arthritis bacterial [None]
  - Spinal osteoarthritis [None]
  - Lumbar spinal stenosis [None]
  - Intervertebral disc degeneration [None]
  - Soft tissue infection [None]
  - Device malfunction [None]
  - Hypertensive encephalopathy [None]
  - Implant site abscess [None]
  - Osteomyelitis [None]
  - Blood pressure inadequately controlled [None]
  - Convulsion [None]
  - Myositis [None]
  - Cellulitis [None]
  - Meningitis [None]
  - Granuloma [None]
  - Spinal osteoarthritis [None]
